FAERS Safety Report 5351679-1 (Version None)
Quarter: 2007Q2

REPORT INFORMATION
  Report Type: 
  Country: None (occurrence: None)
  Receive Date: 20070518
  Receipt Date: 20070208
  Transmission Date: 20071010
  Serious: No
  Sender: FDA-Public Use
  Company Number: TPA2007A00190

PATIENT
  Age: 43 Year
  Sex: Female
  Weight: 92.5338 kg

DRUGS (6)
  1. ROZEREM [Suspect]
     Indication: INSOMNIA
     Dosage: 8 MG, HS, PER ORAL
     Route: 048
     Dates: start: 20070105, end: 20070117
  2. PAXIL CR [Concomitant]
  3. ZIAC [Concomitant]
  4. METFORMIN (METFORMIN) [Concomitant]
  5. MULTIVITAMIN (ERGOCALCIFEROL, ASCORBIC, ACID, FOLIC ACID, THIAMINE HYD [Concomitant]
  6. ATARAX [Concomitant]

REACTIONS (2)
  - DRUG INEFFECTIVE [None]
  - INITIAL INSOMNIA [None]
